FAERS Safety Report 5601330-8 (Version None)
Quarter: 2008Q1

REPORT INFORMATION
  Report Type: 
  Country: None (occurrence: None)
  Receive Date: 20080108
  Receipt Date: 20071011
  Transmission Date: 20080703
  Serious: Yes (Death)
  Sender: FDA-Public Use
  Company Number: PERC20070069

PATIENT
  Age: 43 Year
  Sex: Female
  Weight: 293.5 kg

DRUGS (18)
  1. PERCOCET [Suspect]
     Dates: end: 20070901
  2. KADIAN [Suspect]
     Indication: BACK PAIN
     Dosage: 1 CAP DAILY, PER ORAL
     Route: 048
     Dates: start: 20070829, end: 20070801
  3. ZOLOFT [Suspect]
     Dates: end: 20070901
  4. VALIUM [Suspect]
     Dates: end: 20070901
  5. AMITRIPTYLINE HCL [Suspect]
     Dates: end: 20070901
  6. TRAZODONE HCL [Suspect]
     Dates: end: 20070901
  7. PROPOXYPHENE HYDROCHLORIDE [Suspect]
     Dates: end: 20070901
  8. CYCLOBENZAPRINE HCL [Suspect]
     Dates: end: 20070901
  9. ZOLPIDEM [Suspect]
     Dates: end: 20070901
  10. THEOPHYLLINE [Suspect]
     Dates: end: 20070901
  11. LYRICA [Concomitant]
  12. IMITREX [Concomitant]
  13. PREVACID [Concomitant]
  14. BENICAR [Concomitant]
  15. VYTORIN [Concomitant]
  16. LEVSIN [Concomitant]
  17. NAPROSYN [Concomitant]
  18. ATROPINE [Concomitant]

REACTIONS (4)
  - DEHYDRATION [None]
  - PULMONARY OEDEMA [None]
  - SOMNOLENCE [None]
  - VOMITING [None]
